FAERS Safety Report 15191512 (Version 2)
Quarter: 2018Q4

REPORT INFORMATION
  Report Type: Report from Study
  Country: US (occurrence: US)
  Receive Date: 20180724
  Receipt Date: 20181015
  Transmission Date: 20190204
  Serious: Yes (Other)
  Sender: FDA-Public Use
  Company Number: US-AMGEN-USASL2018040511

PATIENT
  Age: 69 Year
  Sex: Male

DRUGS (3)
  1. KYPROLIS [Suspect]
     Active Substance: CARFILZOMIB
     Dosage: UNK (25 % DECREASE IN DOSE IN SIXTH CYCLE)
     Route: 065
     Dates: start: 201807, end: 2018
  2. KYPROLIS [Suspect]
     Active Substance: CARFILZOMIB
     Dosage: UNK (SEVENTH CYCLE)
     Route: 065
     Dates: start: 2018, end: 2018
  3. KYPROLIS [Suspect]
     Active Substance: CARFILZOMIB
     Indication: PLASMA CELL MYELOMA
     Dosage: UNK (TILL CYCLE FIVE)
     Route: 065

REACTIONS (11)
  - Dyspnoea [Unknown]
  - Atrial fibrillation [Unknown]
  - Peripheral swelling [Unknown]
  - Skin discolouration [Unknown]
  - Joint swelling [Unknown]
  - Malaise [Unknown]
  - Asthenia [Unknown]
  - Dizziness [Unknown]
  - Monoclonal immunoglobulin present [Unknown]
  - Contusion [Unknown]
  - Fatigue [Unknown]

NARRATIVE: CASE EVENT DATE: 2018
